FAERS Safety Report 6761240-X (Version None)
Quarter: 2010Q2

REPORT INFORMATION
  Report Type: 
  Country: None (occurrence: None)
  Receive Date: 20100608
  Receipt Date: 20100525
  Transmission Date: 20101027
  Serious: Yes (Death, Hospitalization, Other)
  Sender: FDA-Public Use
  Company Number: PHEH2005US13361

PATIENT
  Sex: Female

DRUGS (44)
  1. ZOMETA [Suspect]
     Indication: METASTASES TO BONE
     Dosage: 4MG Q8WK
     Route: 042
     Dates: start: 20031121, end: 20050517
  2. AREDIA [Suspect]
     Indication: BONE DISORDER
     Dosage: 90MG Q8WK
     Dates: start: 20010614, end: 20031002
  3. AREDIA [Suspect]
     Dosage: 90MG Q8WK
     Dates: start: 20050816
  4. XELODA [Concomitant]
     Indication: BREAST CANCER
     Dosage: 1000MG BID X14D
     Dates: start: 20020402
  5. LEVOTHYROXINE SODIUM [Concomitant]
     Indication: HYPOTHYROIDISM
     Dosage: 0.1MG QD
  6. DIAZEPAM [Concomitant]
     Indication: ANXIETY
     Dosage: 5-10MG PRN
     Dates: start: 20040209
  7. OXYBUTYNIN CHLORIDE [Concomitant]
  8. HYDROMORPHONE HCL [Concomitant]
     Indication: BONE PAIN
     Dosage: 2-4MG Q4H PRN
     Dates: start: 20031103
  9. PRILOSEC [Concomitant]
     Indication: GASTROINTESTINAL HAEMORRHAGE
     Dosage: 20MG QD
     Dates: start: 20030410
  10. ASPIRIN [Concomitant]
     Dosage: 81MG QD
  11. ALEVE (CAPLET) [Concomitant]
  12. ARANESP [Concomitant]
     Indication: ANAEMIA
     Dosage: 200MCG Q2WK
     Dates: start: 20020606, end: 20051025
  13. ALLOPURINOL [Concomitant]
     Indication: GOUT
     Dosage: 100MG QD
  14. NAPROSYN [Concomitant]
     Indication: PAIN
     Dosage: 250MG TID PRN
     Dates: start: 20030605
  15. NITROGLYCERIN ^PHARMACIA + UPJOHN^ [Concomitant]
     Indication: CHEST PAIN
     Dosage: PRN
  16. ANTIVERT [Concomitant]
     Indication: VERTIGO
     Dosage: 25MG PRN
  17. DARVOCET-N 100 [Concomitant]
     Indication: PAIN
     Dosage: Q4H PRN
     Dates: start: 20050614
  18. MALIC ACID [Concomitant]
     Dosage: 7.5MG BID
  19. CALCIUM CARBONATE [Concomitant]
  20. PROCRIT                            /00909301/ [Concomitant]
     Dosage: UNK
  21. LETROZOLE [Concomitant]
     Dosage: UNK
  22. TAMOXIFEN CITRATE [Concomitant]
     Dosage: UNK
  23. DITROPAN [Concomitant]
     Dosage: UNK
  24. FEOSOL [Concomitant]
     Dosage: UNK
  25. CAPECITABINE [Concomitant]
  26. DOXYCYCLINE [Concomitant]
  27. GUAIFENESIN [Concomitant]
  28. ALUPENT [Concomitant]
  29. NASONEX [Concomitant]
  30. CLARITIN [Concomitant]
  31. MAXZIDE [Concomitant]
  32. DETROL [Concomitant]
  33. ADALAT [Concomitant]
  34. INDOMETHACIN [Concomitant]
  35. SAMARIUM [153 SM] LEXIDRONAM PENTASODIUM [Concomitant]
  36. RADIATION THERAPY [Concomitant]
  37. THIAMINE [Concomitant]
  38. PHENOBARBITAL [Concomitant]
  39. PREMARIN [Concomitant]
  40. ELAVIL [Concomitant]
  41. DEXAMETHASONE [Concomitant]
  42. KADIAN ^KNOLL^ [Concomitant]
  43. QUADRAMET [Concomitant]
  44. INFLUENZA VACCINE [Concomitant]

REACTIONS (65)
  - ABSCESS JAW [None]
  - ANAEMIA [None]
  - ANGINA PECTORIS [None]
  - ARTERIOSCLEROSIS [None]
  - ATAXIA [None]
  - BASAL CELL CARCINOMA [None]
  - BONE DEBRIDEMENT [None]
  - BONE DISORDER [None]
  - CATARACT [None]
  - CATARACT OPERATION [None]
  - CELLULITIS [None]
  - CEREBRAL ARTERY STENOSIS [None]
  - CEREBROSCLEROSIS [None]
  - CERUMEN IMPACTION [None]
  - COLONOSCOPY ABNORMAL [None]
  - COUGH [None]
  - DEATH [None]
  - DENTAL CARIES [None]
  - DIARRHOEA [None]
  - DIVERTICULUM INTESTINAL [None]
  - DIZZINESS [None]
  - DRY MOUTH [None]
  - EAR PAIN [None]
  - EATING DISORDER [None]
  - ERYTHEMA [None]
  - FALL [None]
  - FISTULA [None]
  - GASTROINTESTINAL HAEMORRHAGE [None]
  - GINGIVAL INFECTION [None]
  - GINGIVAL ULCERATION [None]
  - HAEMATOCHEZIA [None]
  - HAEMOGLOBIN DECREASED [None]
  - HEPATIC STEATOSIS [None]
  - HYPOAESTHESIA [None]
  - IMPAIRED HEALING [None]
  - INCISIONAL DRAINAGE [None]
  - INCONTINENCE [None]
  - INTRAOCULAR LENS IMPLANT [None]
  - LYMPHOCYTE COUNT DECREASED [None]
  - MASTICATION DISORDER [None]
  - MEMORY IMPAIRMENT [None]
  - NEUROPATHY PERIPHERAL [None]
  - NIGHT SWEATS [None]
  - OSTEOMYELITIS [None]
  - OSTEONECROSIS OF JAW [None]
  - PAIN [None]
  - PAIN IN EXTREMITY [None]
  - PALMAR-PLANTAR ERYTHRODYSAESTHESIA SYNDROME [None]
  - PRIMARY SEQUESTRUM [None]
  - PURULENCE [None]
  - PYELONEPHRITIS [None]
  - RECTAL HAEMORRHAGE [None]
  - RED BLOOD CELL SEDIMENTATION RATE INCREASED [None]
  - SINUSITIS [None]
  - SKIN EXFOLIATION [None]
  - SOFT TISSUE INFECTION [None]
  - SWELLING [None]
  - TENDERNESS [None]
  - TOOTH DISCOLOURATION [None]
  - TOOTH EXTRACTION [None]
  - TOOTH FRACTURE [None]
  - TOOTH LOSS [None]
  - URINARY TRACT INFECTION [None]
  - WEIGHT DECREASED [None]
  - WHITE BLOOD CELL COUNT DECREASED [None]
